FAERS Safety Report 10285688 (Version 1)
Quarter: 2014Q3

REPORT INFORMATION
  Report Type: Spontaneous
  Country: US (occurrence: US)
  Receive Date: 20140709
  Receipt Date: 20140709
  Transmission Date: 20150326
  Serious: Yes (Other)
  Sender: FDA-Public Use
  Company Number: US-BEH-2014043648

PATIENT
  Age: 55 Year
  Sex: Female
  Weight: 88 kg

DRUGS (42)
  1. LYRICA [Concomitant]
     Active Substance: PREGABALIN
  2. ZOLPIDEM [Concomitant]
     Active Substance: ZOLPIDEM\ZOLPIDEM TARTRATE
  3. VITAMIN B12 [Concomitant]
     Active Substance: CYANOCOBALAMIN
  4. HEPARIN [Concomitant]
     Active Substance: HEPARIN SODIUM
  5. NEXIUM [Concomitant]
     Active Substance: ESOMEPRAZOLE MAGNESIUM
  6. CALCIUM [Concomitant]
     Active Substance: CALCIUM
  7. ADVIL COLD SINUS [Concomitant]
  8. ALBUTEROL. [Concomitant]
     Active Substance: ALBUTEROL
  9. SPIRIVA [Concomitant]
     Active Substance: TIOTROPIUM BROMIDE MONOHYDRATE
  10. PROGRAF [Concomitant]
     Active Substance: TACROLIMUS\TACROLIMUS ANHYDROUS
  11. METOPROLOL [Concomitant]
     Active Substance: METOPROLOL
  12. IBUPROFEN. [Concomitant]
     Active Substance: IBUPROFEN
  13. FOLIC ACID. [Concomitant]
     Active Substance: FOLIC ACID
  14. FISH OIL [Concomitant]
     Active Substance: FISH OIL
  15. DIPHENHYDRAMINE [Concomitant]
     Active Substance: DIPHENHYDRAMINE
  16. REVATIO [Concomitant]
     Active Substance: SILDENAFIL CITRATE
  17. PREVACID [Concomitant]
     Active Substance: LANSOPRAZOLE
  18. ZEMAIRA [Suspect]
     Active Substance: .ALPHA.1-PROTEINASE INHIBITOR HUMAN
     Route: 042
  19. VITAMIN D3 [Concomitant]
     Active Substance: CHOLECALCIFEROL
  20. AZITHROMYCIN [Concomitant]
     Active Substance: AZITHROMYCIN ANHYDROUS
  21. PROAIR HFA [Concomitant]
     Active Substance: ALBUTEROL SULFATE
  22. DOXYCYCLINE. [Concomitant]
     Active Substance: DOXYCYCLINE
  23. GLUCOSAMINE/CHONDROITIN [Concomitant]
  24. CLINDAMYCIN [Concomitant]
     Active Substance: CLINDAMYCIN\CLINDAMYCIN PHOSPHATE
  25. MAGNESIUM [Concomitant]
     Active Substance: MAGNESIUM
  26. ALL OTHER NON-THERAPEUTIC PRODUCTS [Concomitant]
     Active Substance: UNSPECIFIED INGREDIENT
  27. BECLOMETHASONE [Concomitant]
     Active Substance: BECLOMETHASONE
  28. LEVOFLOXACIN [Concomitant]
     Active Substance: LEVOFLOXACIN
  29. ADVAIR HFA [Concomitant]
     Active Substance: FLUTICASONE PROPIONATE\SALMETEROL XINAFOATE
  30. FLEXERIL [Concomitant]
     Active Substance: CYCLOBENZAPRINE HYDROCHLORIDE
  31. XYZAL [Concomitant]
     Active Substance: LEVOCETIRIZINE DIHYDROCHLORIDE
  32. LIDOCAINE. [Concomitant]
     Active Substance: LIDOCAINE
  33. OXYGEN. [Concomitant]
     Active Substance: OXYGEN
  34. PSEUDOEPHEDRINE [Concomitant]
     Active Substance: PSEUDOEPHEDRINE
  35. CYMBALTA [Concomitant]
     Active Substance: DULOXETINE HYDROCHLORIDE
  36. PREDNISONE. [Concomitant]
     Active Substance: PREDNISONE
  37. AVELOX [Concomitant]
     Active Substance: MOXIFLOXACIN HYDROCHLORIDE
  38. XANAX [Concomitant]
     Active Substance: ALPRAZOLAM
  39. SODIUM CHLORIDE. [Concomitant]
     Active Substance: SODIUM CHLORIDE
  40. TRAMADOL [Concomitant]
     Active Substance: TRAMADOL
  41. STOOL SOFTENER [Concomitant]
     Active Substance: DOCUSATE CALCIUM
  42. VICODIN [Concomitant]
     Active Substance: ACETAMINOPHEN\HYDROCODONE BITARTRATE

REACTIONS (2)
  - Fall [Unknown]
  - Loss of consciousness [Unknown]

NARRATIVE: CASE EVENT DATE: 20140626
